FAERS Safety Report 24793608 (Version 1)
Quarter: 2024Q4

REPORT INFORMATION
  Report Type: Spontaneous
  Country: US (occurrence: US)
  Receive Date: 20241231
  Receipt Date: 20241231
  Transmission Date: 20250114
  Serious: Yes (Hospitalization, Other)
  Sender: PHARMING GROUP
  Company Number: US-PHARMING-PHAUS2024001261

PATIENT

DRUGS (1)
  1. RUCONEST [Suspect]
     Active Substance: CONESTAT ALFA
     Indication: Hereditary angioedema
     Dosage: 3300 IU, AS NEEDED
     Route: 042
     Dates: start: 202107

REACTIONS (3)
  - Seizure [Unknown]
  - Insurance issue [Unknown]
  - Product dose omission issue [Unknown]
